FAERS Safety Report 25129944 (Version 2)
Quarter: 2025Q1

REPORT INFORMATION
  Report Type: Spontaneous
  Country: US (occurrence: US)
  Receive Date: 20250327
  Receipt Date: 20250327
  Transmission Date: 20250408
  Serious: Yes (Other)
  Sender: AMGEN
  Company Number: US-AMGEN-USASP2025054353

PATIENT
  Age: 31 Year
  Sex: Female

DRUGS (1)
  1. PREDNISONE [Suspect]
     Active Substance: PREDNISONE
     Indication: Pericarditis
     Route: 065

REACTIONS (4)
  - Acute myocardial infarction [Unknown]
  - Coronary artery occlusion [Unknown]
  - Off label use [Unknown]
  - Drug ineffective for unapproved indication [Unknown]
